FAERS Safety Report 7291178-3 (Version None)
Quarter: 2011Q1

REPORT INFORMATION
  Report Type: 
  Country: None (occurrence: None)
  Receive Date: 20110214
  Receipt Date: 20110202
  Transmission Date: 20110831
  Serious: Yes (Death)
  Sender: FDA-Public Use
  Company Number: RU-MERCK-1102USA00441

PATIENT
  Age: 45 Year
  Sex: Female

DRUGS (1)
  1. INVANZ [Suspect]
     Route: 042

REACTIONS (1)
  - PNEUMONIA [None]
